FAERS Safety Report 7287799-4 (Version None)
Quarter: 2011Q1

REPORT INFORMATION
  Report Type: 
  Country: None (occurrence: None)
  Receive Date: 20110208
  Receipt Date: 20110208
  Transmission Date: 20110831
  Serious: Yes (Life-Threatening, Hospitalization)
  Sender: FDA-Public Use
  Company Number: None

PATIENT
  Sex: Male
  Weight: 96 kg

DRUGS (4)
  1. ALVIMOPAN 12MG GLAXOSMITHKLINE [Suspect]
     Indication: PROPHYLAXIS
     Dosage: 1 CAPSULE TWICE DAILY PO
     Route: 048
     Dates: start: 20110131, end: 20110131
  2. ALVIMOPAN 12MG GLAXOSMITHKLINE [Suspect]
     Indication: ILEUS
     Dosage: 1 CAPSULE TWICE DAILY PO
     Route: 048
     Dates: start: 20110131, end: 20110131
  3. ALVIMOPAN 12MG GLAXOSMITHKLINE [Suspect]
     Indication: PROPHYLAXIS
     Dosage: 1 CAPSULE TWICE DAILY PO
     Route: 048
     Dates: start: 20110129, end: 20110129
  4. ALVIMOPAN 12MG GLAXOSMITHKLINE [Suspect]
     Indication: ILEUS
     Dosage: 1 CAPSULE TWICE DAILY PO
     Route: 048
     Dates: start: 20110129, end: 20110129

REACTIONS (3)
  - UNEVALUABLE EVENT [None]
  - ACUTE MYOCARDIAL INFARCTION [None]
  - DRUG DOSE OMISSION [None]
